FAERS Safety Report 5579257-X (Version None)
Quarter: 2007Q4

REPORT INFORMATION
  Report Type: 
  Country: None (occurrence: None)
  Receive Date: 20071130
  Receipt Date: 20070723
  Transmission Date: 20080405
  Serious: No
  Sender: FDA-Public Use
  Company Number: US200707005693

PATIENT
  Age: 87 Year
  Sex: Female
  Weight: 98 kg

DRUGS (9)
  1. BYETTA [Suspect]
     Indication: TYPE 2 DIABETES MELLITUS
     Dosage: 5 UG, 2/D, SUBCUTANEOUS
     Route: 058
     Dates: start: 20050901, end: 20051001
  2. HUMULIN 30/70 (INSULIN HUMAN INJECTION, ISOPHANE) [Concomitant]
  3. DIOVAN /SCH/ (VALSARTAN) [Concomitant]
  4. VYTORIN [Concomitant]
  5. FUROSEMIDE [Concomitant]
  6. LEVOXYL [Concomitant]
  7. ASPIRIN [Concomitant]
  8. FOLBEE (CYANOCOBALAMIN, FOLIC ACID, PYRIDOXINE) [Concomitant]
  9. AMOXICILLIN [Concomitant]

REACTIONS (3)
  - ORAL MUCOSAL BLISTERING [None]
  - ORAL MUCOSAL EXFOLIATION [None]
  - WEIGHT DECREASED [None]
